FAERS Safety Report 8392487-7 (Version None)
Quarter: 2012Q1

REPORT INFORMATION
  Report Type: 
  Country: None (occurrence: None)
  Receive Date: 20120323
  Receipt Date: 20110223
  Transmission Date: 20120608
  Serious: Yes (Other)
  Sender: FDA-Public Use
  Company Number: 163-21880-11030146

PATIENT
  Age: 68 Year
  Sex: Female

DRUGS (3)
  1. REVLIMID [Suspect]
     Indication: MULTIPLE MYELOMA
     Dosage: 25 MG, 1 IN 1 D, PO ; 15-25MG, DAILY, PO ; 10 MG, 1 IN 1 D, PO
     Route: 048
     Dates: start: 20100820
  2. REVLIMID [Suspect]
     Indication: MULTIPLE MYELOMA
     Dosage: 25 MG, 1 IN 1 D, PO ; 15-25MG, DAILY, PO ; 10 MG, 1 IN 1 D, PO
     Route: 048
     Dates: start: 20091101, end: 20100101
  3. REVLIMID [Suspect]
     Indication: MULTIPLE MYELOMA
     Dosage: 25 MG, 1 IN 1 D, PO ; 15-25MG, DAILY, PO ; 10 MG, 1 IN 1 D, PO
     Route: 048
     Dates: start: 20091001, end: 20090101

REACTIONS (1)
  - RENAL IMPAIRMENT [None]
